FAERS Safety Report 8102078-0 (Version None)
Quarter: 2012Q1

REPORT INFORMATION
  Report Type: 
  Country: None (occurrence: None)
  Receive Date: 20120131
  Receipt Date: 20120123
  Transmission Date: 20120608
  Serious: Yes (Disabling)
  Sender: FDA-Public Use
  Company Number: US-MERCK-1106USA02218

PATIENT
  Age: 74 Year
  Sex: Female

DRUGS (3)
  1. VERAPAMIL EXTENDED-RELEASE [Concomitant]
     Indication: HYPERTENSION
     Route: 065
     Dates: start: 19900101
  2. FOSAMAX [Suspect]
     Indication: BONE DENSITY DECREASED
     Route: 048
     Dates: start: 20020312, end: 20071010
  3. SYNTHROID [Concomitant]
     Indication: THYROID DISORDER
     Route: 065
     Dates: start: 19900101

REACTIONS (7)
  - DENTAL FISTULA [None]
  - CEMENTO OSSEOUS DYSPLASIA [None]
  - BLOOD CHOLESTEROL INCREASED [None]
  - OSTEOMYELITIS [None]
  - OSTEONECROSIS OF JAW [None]
  - THROMBOSIS [None]
  - GRANULOMA [None]
